FAERS Safety Report 4288691-X (Version None)
Quarter: 2004Q1

REPORT INFORMATION
  Report Type: 
  Country: None (occurrence: None)
  Receive Date: 20040205
  Receipt Date: 20040122
  Transmission Date: 20041129
  Serious: Yes (Other)
  Sender: FDA-Public Use
  Company Number: GB-SHR-04-019562

PATIENT
  Age: 47 Year
  Sex: Male

DRUGS (4)
  1. FLUDARABINE (FLUDARABINE  PHOSPHATTE) N/A [Suspect]
     Indication: ACUTE MYELOID LEUKAEMIA
     Dosage: 30 MG/M2, CYCLES
  2. CYTARABINE [Suspect]
     Indication: ACUTE MYELOID LEUKAEMIA
     Dosage: 2000 MG/M2, CYCLES
  3. ACYCLOVIR [Concomitant]
  4. CO-TRIMOXAZOLE [Concomitant]

REACTIONS (8)
  - ACINETOBACTER INFECTION [None]
  - AMNESIA [None]
  - COMPLEX PARTIAL SEIZURES [None]
  - ENCEPHALITIS HERPES [None]
  - ENTEROBACTER INFECTION [None]
  - NEUTROPENIC SEPSIS [None]
  - SEPTIC SHOCK [None]
  - VASCULITIS [None]
